FAERS Safety Report 9922346 (Version 1)
Quarter: 2014Q1

REPORT INFORMATION
  Report Type: Spontaneous
  Country: US (occurrence: None)
  Receive Date: 20140224
  Receipt Date: 20140224
  Transmission Date: 20141002
  Serious: Yes (Life-Threatening, Disabling)
  Sender: FDA-Public Use
  Company Number: None

PATIENT
  Age: 51 Year
  Sex: Female
  Weight: 39.92 kg

DRUGS (5)
  1. HYDROCODONE [Suspect]
     Indication: INFLAMMATION
     Dosage: 1 PILK  THREE TIMES DAILY  TAKEN BY MOUTH
     Route: 048
     Dates: start: 20121103
  2. HYDROCODONE [Suspect]
     Indication: PULMONARY THROMBOSIS
     Dosage: 1 PILK  THREE TIMES DAILY  TAKEN BY MOUTH
     Route: 048
     Dates: start: 20121103
  3. HYDROCODONE [Suspect]
     Indication: ARTHRITIS
     Dosage: 1 PILK  THREE TIMES DAILY  TAKEN BY MOUTH
     Route: 048
     Dates: start: 20121103
  4. TRAMADOL 50MG [Suspect]
     Indication: DYSMENORRHOEA
     Dosage: 1 PILL  THREE TIMES DAILY TAKEN BY MOUTH
     Route: 048
     Dates: start: 20040528
  5. TRAMADOL 50MG [Suspect]
     Indication: MUSCLE SPASMS
     Dosage: 1 PILL  THREE TIMES DAILY TAKEN BY MOUTH
     Route: 048
     Dates: start: 20040528

REACTIONS (3)
  - Grand mal convulsion [None]
  - Product substitution issue [None]
  - Product taste abnormal [None]
